FAERS Safety Report 13676289 (Version 3)
Quarter: 2018Q3

REPORT INFORMATION
  Report Type: Spontaneous
  Country: US (occurrence: US)
  Receive Date: 20170622
  Receipt Date: 20180730
  Transmission Date: 20181010
  Serious: No
  Sender: FDA-Public Use
  Company Number: US-AMGEN-USASP2017089757

PATIENT
  Age: 0 Year
  Sex: Female
  Weight: 3.94 kg

DRUGS (4)
  1. ADVAIR HFA [Concomitant]
     Active Substance: FLUTICASONE PROPIONATE\SALMETEROL XINAFOATE
     Dosage: UNK
     Route: 064
  2. ENBREL [Suspect]
     Active Substance: ETANERCEPT
     Indication: EXPOSURE DURING PREGNANCY
     Dosage: 50 MG, QWK
     Route: 064
     Dates: start: 2016
  3. ADVIL [Concomitant]
     Active Substance: IBUPROFEN
     Indication: TEETHING
     Dosage: UNK UNK, AS NECESSARY
  4. TYLENOL [Concomitant]
     Active Substance: ACETAMINOPHEN
     Indication: TEETHING
     Dosage: UNK UNK, AS NECESSARY

REACTIONS (1)
  - Face presentation [Recovered/Resolved]

NARRATIVE: CASE EVENT DATE: 20170314
